FAERS Safety Report 14337823 (Version 1)
Quarter: 2017Q4

REPORT INFORMATION
  Report Type: Spontaneous
  Country: FR (occurrence: FR)
  Receive Date: 20171229
  Receipt Date: 20171229
  Transmission Date: 20180321
  Serious: Yes (Hospitalization, Other)
  Sender: FDA-Public Use
  Company Number: FR-PFIZER INC-2017551029

PATIENT
  Age: 52 Year
  Sex: Male
  Weight: 63.5 kg

DRUGS (5)
  1. ZARZIO [Suspect]
     Active Substance: FILGRASTIM
     Indication: NEUTROPENIA
     Dosage: 30 MILLION IU, 1X/DAY
     Route: 058
     Dates: start: 20171123, end: 20171202
  2. CYTARABINE. [Suspect]
     Active Substance: CYTARABINE
     Indication: ACUTE MYELOID LEUKAEMIA
     Dosage: 500 MG/M2, 1X/DAY
     Route: 042
     Dates: start: 20171123, end: 20171125
  3. TAZOCILLINE [Suspect]
     Active Substance: PIPERACILLIN SODIUM\TAZOBACTAM SODIUM
     Indication: INFECTION
     Dosage: 4 G, 4X/DAY
     Route: 042
     Dates: start: 20171121, end: 20171130
  4. DAUNORUBICINE [Suspect]
     Active Substance: DAUNORUBICIN
     Indication: ACUTE MYELOID LEUKAEMIA
     Dosage: 60 MG/M2, 1X/DAY
     Route: 042
     Dates: start: 20171123, end: 20171125
  5. ROVAMYCINE /00074404/ [Suspect]
     Active Substance: SPIRAMYCIN ADIPATE
     Indication: INFECTION
     Dosage: UNK
     Route: 042
     Dates: start: 20171126, end: 20171202

REACTIONS (1)
  - Cerebellar syndrome [Recovered/Resolved]

NARRATIVE: CASE EVENT DATE: 20171129
